FAERS Safety Report 18221520 (Version 1)
Quarter: 2020Q3

REPORT INFORMATION
  Report Type: Spontaneous
  Country: US (occurrence: US)
  Receive Date: 20200901
  Receipt Date: 20200901
  Transmission Date: 20201103
  Serious: No
  Sender: FDA-Public Use
  Company Number: None

PATIENT
  Age: 83 Year
  Sex: Female
  Weight: 47.25 kg

DRUGS (4)
  1. SUTENT [Suspect]
     Active Substance: SUNITINIB MALATE
     Indication: RECTAL CANCER
     Route: 048
     Dates: start: 20200807
  2. MULTIVITAMIN 100MG [Concomitant]
  3. FISH OIL 1000MG [Concomitant]
  4. OPTIVITE P.M.T 100MG [Concomitant]

REACTIONS (3)
  - Chills [None]
  - Pyrexia [None]
  - Infection [None]

NARRATIVE: CASE EVENT DATE: 20200901
